FAERS Safety Report 8938544 (Version 2)
Quarter: 2012Q4

REPORT INFORMATION
  Report Type: 
  Country: US (occurrence: US)
  Receive Date: 20121203
  Receipt Date: 20121226
  Transmission Date: 20130627
  Serious: Yes (Other)
  Sender: FDA-Public Use
  Company Number: PHEH2012US023388

PATIENT
  Sex: Female

DRUGS (5)
  1. DIOVAN HCT [Suspect]
     Dosage: 1 DF (160 mg vals + 12.5 mg HCTZ), UNK
  2. DIBETA [Suspect]
  3. ADVAIR [Suspect]
  4. PRO-AIR [Suspect]
  5. BABY ASPIRIN [Suspect]
     Dosage: 81 mg, UNK
     Dates: start: 2008

REACTIONS (3)
  - Diabetes mellitus [Unknown]
  - Oedema peripheral [Recovered/Resolved]
  - Epistaxis [Unknown]
